FAERS Safety Report 4840045-0 (Version None)
Quarter: 2005Q4

REPORT INFORMATION
  Report Type: 
  Country: None (occurrence: None)
  Receive Date: 20051125
  Receipt Date: 20051114
  Transmission Date: 20060501
  Serious: Yes (Other)
  Sender: FDA-Public Use
  Company Number: JP-2005-022272

PATIENT
  Age: 78 Year
  Sex: Female

DRUGS (1)
  1. PROSCOPE 300 (IOPROMIDE)INFUSION [Suspect]
     Indication: COMPUTERISED TOMOGRAM
     Dosage: 100 ML 1 DOSE, INTRAVENOUS
     Route: 042
     Dates: start: 20051024, end: 20051024

REACTIONS (8)
  - DEPRESSED LEVEL OF CONSCIOUSNESS [None]
  - HYPOAESTHESIA ORAL [None]
  - PROCEDURAL COMPLICATION [None]
  - SHOCK [None]
  - SNEEZING [None]
  - STOMACH DISCOMFORT [None]
  - THIRST [None]
  - YAWNING [None]
